FAERS Safety Report 6190899-3 (Version None)
Quarter: 2009Q2

REPORT INFORMATION
  Report Type: 
  Country: None (occurrence: None)
  Receive Date: 20090513
  Receipt Date: 20090428
  Transmission Date: 20091009
  Serious: Yes (Hospitalization)
  Sender: FDA-Public Use
  Company Number: 2008S1018898

PATIENT
  Age: 20 Year
  Sex: Male

DRUGS (3)
  1. OMEPRAZOLE [Suspect]
     Indication: DRUG USE FOR UNKNOWN INDICATION
  2. AZITHROMYCIN [Suspect]
     Indication: DRUG USE FOR UNKNOWN INDICATION
  3. CIPROFLOXACIN [Suspect]
     Indication: DRUG USE FOR UNKNOWN INDICATION
     Dosage: ; ORAL
     Route: 048

REACTIONS (7)
  - APPENDIX DISORDER [None]
  - DEHYDRATION [None]
  - HYPOTENSION [None]
  - PSEUDOMEMBRANOUS COLITIS [None]
  - PYREXIA [None]
  - TACHYCARDIA [None]
  - VOMITING [None]
